FAERS Safety Report 6902220-0 (Version None)
Quarter: 2010Q3

REPORT INFORMATION
  Report Type: 
  Country: None (occurrence: None)
  Receive Date: 20100803
  Receipt Date: 20080428
  Transmission Date: 20110219
  Serious: No
  Sender: FDA-Public Use
  Company Number: US-PFIZER INC-2008036815

PATIENT
  Sex: Female
  Weight: 77.1 kg

DRUGS (3)
  1. LYRICA [Suspect]
     Indication: SURGERY
     Route: 048
     Dates: start: 20080101
  2. LYRICA [Suspect]
     Indication: NEURALGIA
  3. VITAMIN TAB [Concomitant]

REACTIONS (3)
  - NECK PAIN [None]
  - PAIN IN JAW [None]
  - WEIGHT INCREASED [None]
